FAERS Safety Report 14271294 (Version 7)
Quarter: 2018Q2

REPORT INFORMATION
  Report Type: Spontaneous
  Country: PT (occurrence: PT)
  Receive Date: 20171211
  Receipt Date: 20180611
  Transmission Date: 20180711
  Serious: Yes (Disabling)
  Sender: FDA-Public Use
  Company Number: PT-MYLANLABS-2017M1077163

PATIENT
  Age: 78 Year
  Sex: Female
  Weight: 68 kg

DRUGS (18)
  1. CARTIA XT [Concomitant]
     Active Substance: DILTIAZEM HYDROCHLORIDE
     Indication: PROPHYLAXIS
     Dosage: 200 MG, QD
     Route: 048
     Dates: start: 19920101
  2. FOSAVANCE [Concomitant]
     Active Substance: ALENDRONATE SODIUM\CHOLECALCIFEROL
     Indication: OSTEOPOROSIS PROPHYLAXIS
     Dosage: 1 DF, QW
     Route: 048
  3. TRAMADOL. [Suspect]
     Active Substance: TRAMADOL
     Dosage: 1 DF, UNK
     Route: 048
     Dates: start: 20170817, end: 20170824
  4. TRIDURAL [Suspect]
     Active Substance: TRAMADOL HYDROCHLORIDE
     Indication: OSTEOARTHRITIS
     Dosage: 100 MG, BID
     Route: 048
     Dates: start: 20170824, end: 20171003
  5. PARACETAMOL SANDOZ [Suspect]
     Active Substance: ACETAMINOPHEN
     Indication: OSTEOARTHRITIS
     Dosage: 1 G, QD
     Route: 048
     Dates: start: 20170824, end: 20170920
  6. TRAMADOL. [Suspect]
     Active Substance: TRAMADOL
     Indication: OSTEOARTHRITIS
     Dosage: 1 DF, UNK
     Route: 042
     Dates: start: 20170810, end: 20170817
  7. NOLOTIL (DEXTROPROPOXYPHENE/METAMIZOLE MAGNESIUM) [Suspect]
     Active Substance: METAMIZOLE\PROPOXYPHENE
     Indication: OSTEOPOROSIS PROPHYLAXIS
  8. LISALGIL [Suspect]
     Active Substance: METAMIZOLE SODIUM
     Indication: OSTEOARTHRITIS
     Dosage: 1 DF, UNK
     Route: 042
     Dates: start: 20170810, end: 20170815
  9. TENORMINE [Concomitant]
     Active Substance: ATENOLOL
     Indication: HYPERTENSION
     Dosage: 50 MG, QD
     Route: 048
     Dates: start: 19910101
  10. PARACETAMOL [Suspect]
     Active Substance: ACETAMINOPHEN
     Dosage: 1 G, QD
     Route: 048
     Dates: start: 20170824, end: 20170920
  11. NOLOTIL (DEXTROPROPOXYPHENE/METAMIZOLE MAGNESIUM) [Suspect]
     Active Substance: METAMIZOLE\PROPOXYPHENE
     Indication: OSTEOARTHRITIS
     Route: 042
     Dates: start: 20170810, end: 20170816
  12. AMLODIPINE [Concomitant]
     Active Substance: AMLODIPINE BESYLATE
     Indication: HYPERTENSION
     Dosage: 5 MG, QD
     Route: 048
     Dates: start: 20120101
  13. HYTACAND [Concomitant]
     Active Substance: CANDESARTAN CILEXETIL\HYDROCHLOROTHIAZIDE
     Indication: HYPERTENSION
     Dosage: 16 MG, QD
     Route: 048
     Dates: start: 19910101
  14. DIAMICRON LM [Concomitant]
     Active Substance: GLICLAZIDE
     Indication: GLUCOSE TOLERANCE IMPAIRED
     Dosage: 30 MG, QD
     Route: 048
     Dates: start: 20150101
  15. TRAMADOL. [Suspect]
     Active Substance: TRAMADOL
     Dosage: 200 MG, UNK
     Route: 048
     Dates: start: 20170824, end: 20171003
  16. PARACETAMOL [Suspect]
     Active Substance: ACETAMINOPHEN
     Indication: OSTEOARTHRITIS
     Dosage: 1 DF, QD
     Route: 042
     Dates: start: 20170810, end: 20170817
  17. PARACETAMOL [Suspect]
     Active Substance: ACETAMINOPHEN
     Dosage: 1 G, UNK
     Route: 048
     Dates: start: 20170817, end: 20170823
  18. OMEPRAZOLE. [Concomitant]
     Active Substance: OMEPRAZOLE
     Indication: PROPHYLAXIS AGAINST GASTROINTESTINAL ULCER
     Dosage: 20 MG, QD
     Route: 048
     Dates: start: 20080101

REACTIONS (15)
  - Flatulence [Recovered/Resolved]
  - Heart rate increased [Recovered/Resolved]
  - Cachexia [Recovered/Resolved]
  - Constipation [Recovered/Resolved]
  - Decreased appetite [Recovered/Resolved]
  - Headache [None]
  - Vomiting [Recovered/Resolved]
  - Tremor [Recovered/Resolved]
  - Micturition frequency decreased [Recovered/Resolved]
  - Abdominal distension [Recovered/Resolved]
  - Hyperhidrosis [None]
  - Diarrhoea [Recovered/Resolved]
  - Hallucination, visual [Recovered/Resolved]
  - Nausea [Recovered/Resolved]
  - Abdominal discomfort [None]

NARRATIVE: CASE EVENT DATE: 20170801
